FAERS Safety Report 10172731 (Version 2)
Quarter: 2014Q2

REPORT INFORMATION
  Report Type: Spontaneous
  Country: DE (occurrence: DE)
  Receive Date: 20140515
  Receipt Date: 20140529
  Transmission Date: 20141212
  Serious: Yes (Life-Threatening)
  Sender: FDA-Public Use
  Company Number: DE-ROCHE-1398094

PATIENT
  Age: 13 Year
  Sex: Female
  Weight: 54 kg

DRUGS (4)
  1. CELLCEPT [Suspect]
     Indication: SYSTEMIC LUPUS ERYTHEMATOSUS
     Route: 048
     Dates: start: 20140422, end: 20140506
  2. CELLCEPT [Suspect]
     Indication: LUPUS NEPHRITIS
  3. DECORTIN [Concomitant]
     Indication: SYSTEMIC LUPUS ERYTHEMATOSUS
     Route: 048
     Dates: start: 20140422
  4. KEPINOL FORTE [Concomitant]
     Route: 048
     Dates: start: 20140422

REACTIONS (2)
  - Pulmonary alveolar haemorrhage [Recovering/Resolving]
  - Off label use [Unknown]
